FAERS Safety Report 7416402-5 (Version None)
Quarter: 2011Q2

REPORT INFORMATION
  Report Type: 
  Country: None (occurrence: None)
  Receive Date: 20110414
  Receipt Date: 20110405
  Transmission Date: 20111010
  Serious: Yes (Other)
  Sender: FDA-Public Use
  Company Number: US-ASTRAZENECA-2011SE19353

PATIENT
  Age: 41 Year
  Sex: Male

DRUGS (1)
  1. ZOMIG [Suspect]
     Route: 045

REACTIONS (2)
  - JAW FRACTURE [None]
  - FEELING ABNORMAL [None]
